FAERS Safety Report 15304984 (Version 1)
Quarter: 2018Q3

REPORT INFORMATION
  Report Type: Spontaneous
  Country: US (occurrence: US)
  Receive Date: 20180810
  Receipt Date: 20180810
  Transmission Date: 20181010
  Serious: Yes (Life-Threatening)
  Sender: FDA-Public Use
  Company Number: None

PATIENT
  Age: 75 Year
  Sex: Female
  Weight: 60.75 kg

DRUGS (11)
  1. ARIMIDEX [Suspect]
     Active Substance: ANASTROZOLE
     Indication: BREAST CANCER
     Dosage: ?          QUANTITY:1 TABLET(S);?
     Route: 048
     Dates: start: 20180320, end: 20180717
  2. STATIN [Concomitant]
     Active Substance: UNSPECIFIED INGREDIENT
  3. MULTIVITAMIN [Concomitant]
     Active Substance: VITAMINS
  4. ACETOMENOPHEN [Concomitant]
  5. ATORVOSTATIN [Concomitant]
     Active Substance: ATORVASTATIN
  6. ATENOLOL. [Concomitant]
     Active Substance: ATENOLOL
  7. BUPROPION. [Concomitant]
     Active Substance: BUPROPION
  8. MULTIVITAMIN WITH LEUTIN [Concomitant]
  9. CALCIUM WITH D3 [Concomitant]
  10. VITAMIN D3 [Concomitant]
     Active Substance: CHOLECALCIFEROL
  11. MELATONIN [Concomitant]
     Active Substance: MELATONIN

REACTIONS (3)
  - Fatigue [None]
  - Pancytopenia [None]
  - Gait disturbance [None]

NARRATIVE: CASE EVENT DATE: 20180801
